FAERS Safety Report 8202573-X (Version None)
Quarter: 2012Q1

REPORT INFORMATION
  Report Type: 
  Country: None (occurrence: None)
  Receive Date: 20120312
  Receipt Date: 20120305
  Transmission Date: 20120608
  Serious: Yes (Hospitalization, Disabling, Other)
  Sender: FDA-Public Use
  Company Number: PHHY2012NO019464

PATIENT
  Sex: Male

DRUGS (5)
  1. VALIUM [Suspect]
     Indication: PANIC DISORDER
     Dates: start: 20100201, end: 20100101
  2. FLUOXETINE [Suspect]
     Indication: ANXIETY
     Dosage: 20 MG, QD
     Dates: start: 20100201, end: 20100601
  3. ALPRAZOLAM [Suspect]
     Indication: ANXIETY
     Dosage: 0.5 MG, QID FOR 2 WEEKS. STOPPED THE DRUG
     Dates: start: 20100201, end: 20100301
  4. INDERAL [Concomitant]
     Indication: HEART RATE INCREASED
     Dates: start: 20100401
  5. ALPRAZOLAM [Suspect]
     Indication: PANIC DISORDER
     Dosage: STARTED AGAIN WITH 0.25 MG BID, REDUCING FROM THERE.
     Dates: end: 20100301

REACTIONS (12)
  - INSOMNIA [None]
  - PHOTOPHOBIA [None]
  - FATIGUE [None]
  - DYSPNOEA [None]
  - ANXIETY [None]
  - FUNGAL INFECTION [None]
  - HANGOVER [None]
  - MUSCLE SPASMS [None]
  - ABDOMINAL PAIN [None]
  - WITHDRAWAL SYNDROME [None]
  - CONSTIPATION [None]
  - HEADACHE [None]
